FAERS Safety Report 24846012 (Version 1)
Quarter: 2025Q1

REPORT INFORMATION
  Report Type: Spontaneous
  Country: DE (occurrence: DE)
  Receive Date: 20250115
  Receipt Date: 20250115
  Transmission Date: 20250409
  Serious: Yes (Hospitalization)
  Sender: BIOMARIN
  Company Number: DE-BIOMARINAP-DE-2025-163083

PATIENT

DRUGS (1)
  1. VIMIZIM [Suspect]
     Active Substance: ELOSULFASE ALFA
     Indication: Product used for unknown indication
     Route: 065

REACTIONS (3)
  - Chest discomfort [Unknown]
  - Heart rate increased [Unknown]
  - Dyspnoea [Unknown]
